FAERS Safety Report 13259804 (Version 5)
Quarter: 2020Q3

REPORT INFORMATION
  Report Type: Report from Study
  Country: DE (occurrence: DE)
  Receive Date: 20170222
  Receipt Date: 20170323
  Transmission Date: 20201105
  Serious: Yes (Death, Life-Threatening, Hospitalization)
  Sender: FDA-Public Use
  Company Number: PHHY2017DE024516

PATIENT
  Sex: Male
  Weight: 96 kg

DRUGS (4)
  1. LORAZEPAM. [Concomitant]
     Active Substance: LORAZEPAM
     Indication: PRODUCT USED FOR UNKNOWN INDICATION
     Route: 048
  2. ALECTINIB. [Suspect]
     Active Substance: ALECTINIB
     Indication: PRODUCT USED FOR UNKNOWN INDICATION
     Dosage: 600 MG
     Route: 065
     Dates: end: 20170212
  3. ZYKADIA [Suspect]
     Active Substance: CERITINIB
     Indication: NON-SMALL CELL LUNG CANCER METASTATIC
     Dosage: 750 MG, QD
     Route: 048
     Dates: start: 20161211
  4. ZYKADIA [Suspect]
     Active Substance: CERITINIB
     Dosage: 600 MG, UNK
     Route: 048
     Dates: end: 20170212

REACTIONS (18)
  - Haematocrit decreased [Unknown]
  - Non-small cell lung cancer metastatic [Fatal]
  - Prothrombin time shortened [Unknown]
  - Glomerular filtration rate decreased [Unknown]
  - Blood urea increased [Unknown]
  - Metastases to liver [Fatal]
  - Hepatic pain [Fatal]
  - Hepatorenal syndrome [Not Recovered/Not Resolved]
  - International normalised ratio increased [Unknown]
  - Malignant neoplasm progression [Fatal]
  - White blood cell count increased [Unknown]
  - Activated partial thromboplastin time prolonged [Unknown]
  - Blood uric acid increased [Unknown]
  - Transaminases increased [Fatal]
  - Blood creatinine increased [Unknown]
  - Blood sodium decreased [Unknown]
  - Hepatotoxicity [Not Recovered/Not Resolved]
  - Haemoglobin decreased [Unknown]

NARRATIVE: CASE EVENT DATE: 20170109
